FAERS Safety Report 17585970 (Version 1)
Quarter: 2020Q1

REPORT INFORMATION
  Report Type: Spontaneous
  Country: FR (occurrence: FR)
  Receive Date: 20200326
  Receipt Date: 20200326
  Transmission Date: 20200409
  Serious: Yes (Hospitalization)
  Sender: FDA-Public Use
  Company Number: FR-MYLANLABS-2020M1031709

PATIENT
  Age: 41 Year
  Sex: Female
  Weight: 78 kg

DRUGS (2)
  1. LEPONEX 100 MG, COMPRIME SECABLE [Suspect]
     Active Substance: CLOZAPINE
     Indication: SCHIZOPHRENIA
     Dosage: 700 MILLIGRAM, QD
     Route: 048
     Dates: start: 201303, end: 20191123
  2. XEROQUEL [Suspect]
     Active Substance: QUETIAPINE FUMARATE
     Indication: SCHIZOPHRENIA
     Dosage: 800 MILLIGRAM, QD
     Route: 048
     Dates: start: 201407, end: 20191123

REACTIONS (4)
  - Hepatitis cholestatic [Not Recovered/Not Resolved]
  - Renal tubular necrosis [Not Recovered/Not Resolved]
  - Colitis [Recovered/Resolved]
  - Hepatorenal syndrome [Not Recovered/Not Resolved]

NARRATIVE: CASE EVENT DATE: 20191111
